FAERS Safety Report 8478768-7 (Version None)
Quarter: 2012Q2

REPORT INFORMATION
  Report Type: 
  Country: None (occurrence: None)
  Receive Date: 20120629
  Receipt Date: 20120619
  Transmission Date: 20120825
  Serious: Yes (Other)
  Sender: FDA-Public Use
  Company Number: US-VERTEX PHARMACEUTICALS INC.-AE-2012-005712

PATIENT
  Age: 62 Year
  Sex: Male

DRUGS (7)
  1. ZOLPIDEM [Concomitant]
  2. RIBAVIRIN [Concomitant]
     Indication: HEPATITIS C
     Dates: start: 20120206, end: 20120425
  3. INCIVEK [Suspect]
     Indication: HEPATITIS C
     Dates: start: 20120206, end: 20120418
  4. PEGASYS [Concomitant]
     Indication: HEPATITIS C
     Dates: start: 20120206, end: 20120425
  5. INSULIN [Concomitant]
  6. ONDANSETRON [Concomitant]
  7. CLOBETASOL PROPIONATE [Concomitant]

REACTIONS (1)
  - DRUG RASH WITH EOSINOPHILIA AND SYSTEMIC SYMPTOMS [None]
